FAERS Safety Report 25996330 (Version 1)
Quarter: 2025Q4

REPORT INFORMATION
  Report Type: Spontaneous
  Country: CA (occurrence: CA)
  Receive Date: 20251104
  Receipt Date: 20251104
  Transmission Date: 20260117
  Serious: Yes (Other)
  Sender: SCIEGEN PHARMACEUTICALS INC
  Company Number: CA-SCIEGENP-2025SCLIT00349

PATIENT
  Age: 22 Year
  Sex: Female

DRUGS (14)
  1. LACOSAMIDE [Suspect]
     Active Substance: LACOSAMIDE
     Indication: Generalised tonic-clonic seizure
     Route: 065
  2. LACOSAMIDE [Suspect]
     Active Substance: LACOSAMIDE
     Indication: New onset refractory status epilepticus
  3. LEVETIRACETAM [Suspect]
     Active Substance: LEVETIRACETAM
     Indication: Generalised tonic-clonic seizure
     Route: 065
  4. LEVETIRACETAM [Suspect]
     Active Substance: LEVETIRACETAM
     Indication: New onset refractory status epilepticus
     Dosage: DOSE WAS INCREASED
     Route: 065
  5. LEVETIRACETAM [Suspect]
     Active Substance: LEVETIRACETAM
     Dosage: DOSE WAS INCREASED
     Route: 065
  6. LAMOTRIGINE [Suspect]
     Active Substance: LAMOTRIGINE
     Indication: Generalised tonic-clonic seizure
     Route: 065
  7. LAMOTRIGINE [Suspect]
     Active Substance: LAMOTRIGINE
     Indication: New onset refractory status epilepticus
  8. PREDNISONE [Suspect]
     Active Substance: PREDNISONE
     Indication: New onset refractory status epilepticus
     Route: 048
  9. OXCARBAZEPINE [Suspect]
     Active Substance: OXCARBAZEPINE
     Indication: Generalised tonic-clonic seizure
     Route: 065
  10. OXCARBAZEPINE [Suspect]
     Active Substance: OXCARBAZEPINE
     Indication: New onset refractory status epilepticus
     Route: 065
  11. CLOBAZAM [Suspect]
     Active Substance: CLOBAZAM
     Indication: New onset refractory status epilepticus
     Route: 065
  12. METHYLPREDNISOLONE [Suspect]
     Active Substance: METHYLPREDNISOLONE
     Indication: New onset refractory status epilepticus
     Route: 042
  13. PROPOFOL [Concomitant]
     Active Substance: PROPOFOL
     Indication: Sedation
     Route: 065
  14. MIDAZOLAM [Concomitant]
     Active Substance: MIDAZOLAM
     Indication: Sedation
     Route: 065

REACTIONS (6)
  - Suicide attempt [Unknown]
  - Intentional overdose [Unknown]
  - Exposure during pregnancy [Unknown]
  - Mood swings [Recovering/Resolving]
  - Ataxia [Unknown]
  - Somnolence [Unknown]
